FAERS Safety Report 5256157-6 (Version None)
Quarter: 2007Q1

REPORT INFORMATION
  Report Type: 
  Country: None (occurrence: None)
  Receive Date: 20070302
  Receipt Date: 20070302
  Transmission Date: 20070707
  Serious: Yes (Other)
  Sender: FDA-Public Use
  Company Number: None

PATIENT
  Sex: Male
  Weight: 96.6162 kg

DRUGS (13)
  1. ADENOSINE [Suspect]
     Indication: CHEST DISCOMFORT
     Dosage: 140MCG/MIN IV
     Route: 042
     Dates: start: 20070118, end: 20070118
  2. TYLENOL W/ CODEINE [Concomitant]
  3. QUININE [Concomitant]
  4. ASPIRIN [Concomitant]
  5. ATENOLOL [Concomitant]
  6. DOCUSATE [Concomitant]
  7. FORMOTEROL FUMARATE [Concomitant]
  8. GABAPENTIN [Concomitant]
  9. COMBIVENT [Concomitant]
  10. NITROGLYCERIN [Concomitant]
  11. SIMVASTATIN [Concomitant]
  12. SERTRALINE [Concomitant]
  13. OMEPRAZOLE [Concomitant]

REACTIONS (2)
  - BRONCHOSPASM [None]
  - PROCEDURAL COMPLICATION [None]
